FAERS Safety Report 22274263 (Version 3)
Quarter: 2023Q4

REPORT INFORMATION
  Report Type: Spontaneous
  Country: CA (occurrence: CA)
  Receive Date: 20230502
  Receipt Date: 20231101
  Transmission Date: 20240109
  Serious: Yes (Hospitalization)
  Sender: FDA-Public Use
  Company Number: CA-Covis Pharma Europe B.V.-2023COV01033

PATIENT

DRUGS (5)
  1. ALVESCO [Suspect]
     Active Substance: CICLESONIDE
     Route: 065
  2. MOMETASONE FUROATE [Suspect]
     Active Substance: MOMETASONE FUROATE
  3. MONTELUKAST SODIUM [Suspect]
     Active Substance: MONTELUKAST SODIUM
  4. OMALIZUMAB [Suspect]
     Active Substance: OMALIZUMAB
  5. ALBUTEROL [Suspect]
     Active Substance: ALBUTEROL

REACTIONS (5)
  - Chest pain [Unknown]
  - Erythema [Unknown]
  - Middle insomnia [Unknown]
  - Migraine [Unknown]
  - Visual impairment [Unknown]
